FAERS Safety Report 22304977 (Version 4)
Quarter: 2023Q4

REPORT INFORMATION
  Report Type: Spontaneous
  Country: US (occurrence: US)
  Receive Date: 20230510
  Receipt Date: 20231031
  Transmission Date: 20240109
  Serious: Yes (Hospitalization, Other)
  Sender: FDA-Public Use
  Company Number: US-BRISTOL-MYERS SQUIBB COMPANY-2023-064976

PATIENT
  Age: 73 Year
  Sex: Male

DRUGS (1)
  1. REVLIMID [Suspect]
     Active Substance: LENALIDOMIDE
     Indication: Plasma cell myeloma
     Dosage: EVERY NIGHT AT BEDTIME FOR 21 DAYS EVERY 28 DAYS
     Route: 048
     Dates: start: 20230508, end: 20231016

REACTIONS (3)
  - Blood calcium increased [Recovering/Resolving]
  - Renal impairment [Recovering/Resolving]
  - Lung neoplasm malignant [Recovering/Resolving]
